FAERS Safety Report 15853674 (Version 8)
Quarter: 2020Q3

REPORT INFORMATION
  Report Type: Spontaneous
  Country: US (occurrence: US)
  Receive Date: 20190122
  Receipt Date: 20200904
  Transmission Date: 20201102
  Serious: Yes (Other)
  Sender: FDA-Public Use
  Company Number: US-PFIZER INC-2019028338

PATIENT
  Age: 58 Year
  Sex: Female
  Weight: 73.03 kg

DRUGS (3)
  1. PHENYTOIN SODIUM. [Suspect]
     Active Substance: PHENYTOIN SODIUM
     Indication: ANEURYSM
     Dosage: 400 MG, DAILY (200 MG IN THE AM AND 100 MG AT 12 AND AT 6)
  2. PHENYTOIN SODIUM. [Suspect]
     Active Substance: PHENYTOIN SODIUM
     Dosage: 100 MG, 4X/DAY
     Dates: start: 2016, end: 2016
  3. PHENYTOIN SODIUM. [Suspect]
     Active Substance: PHENYTOIN SODIUM
     Indication: SEIZURE
     Dosage: 100 MG, UNK

REACTIONS (3)
  - Drug ineffective [Recovering/Resolving]
  - Pupillary disorder [Unknown]
  - Illness [Unknown]
